FAERS Safety Report 15119817 (Version 4)
Quarter: 2018Q3

REPORT INFORMATION
  Report Type: Report from Study
  Country: CA (occurrence: CA)
  Receive Date: 20180709
  Receipt Date: 20180928
  Transmission Date: 20181010
  Serious: Yes (Other)
  Sender: FDA-Public Use
  Company Number: PHHY2017CA061325

PATIENT
  Age: 11 Year
  Sex: Male

DRUGS (20)
  1. ILARIS [Suspect]
     Active Substance: CANAKINUMAB
     Dosage: 75 OT, QW
     Route: 058
     Dates: start: 20180723
  2. ILARIS [Suspect]
     Active Substance: CANAKINUMAB
     Indication: TUMOUR NECROSIS FACTOR RECEPTOR-ASSOCIATED PERIODIC SYNDROME
     Dosage: 75 MG, 4 WEEKS
     Route: 058
     Dates: start: 20150126
  3. ILARIS [Suspect]
     Active Substance: CANAKINUMAB
     Dosage: 75 MG, Q4W
     Route: 058
     Dates: start: 20171230
  4. ILARIS [Suspect]
     Active Substance: CANAKINUMAB
     Dosage: UNK
     Route: 058
     Dates: start: 20170615
  5. ILARIS [Suspect]
     Active Substance: CANAKINUMAB
     Dosage: UNK
     Route: 058
     Dates: start: 20171101
  6. ILARIS [Suspect]
     Active Substance: CANAKINUMAB
     Dosage: 75 OT, Q4W
     Route: 058
     Dates: start: 20180228
  7. ILARIS [Suspect]
     Active Substance: CANAKINUMAB
     Dosage: UNK
     Route: 058
     Dates: start: 20170422
  8. ILARIS [Suspect]
     Active Substance: CANAKINUMAB
     Dosage: 75 OT, Q4W
     Route: 058
     Dates: start: 20180324
  9. ILARIS [Suspect]
     Active Substance: CANAKINUMAB
     Dosage: 75 OT, Q4W
     Route: 058
     Dates: start: 20180918
  10. ILARIS [Suspect]
     Active Substance: CANAKINUMAB
     Dosage: UNK
     Route: 058
     Dates: start: 20170519
  11. ILARIS [Suspect]
     Active Substance: CANAKINUMAB
     Dosage: UNK
     Route: 058
     Dates: start: 20170714
  12. ILARIS [Suspect]
     Active Substance: CANAKINUMAB
     Dosage: UNK
     Route: 058
     Dates: start: 20170907
  13. ILARIS [Suspect]
     Active Substance: CANAKINUMAB
     Dosage: 75 OT, Q4W
     Route: 058
     Dates: start: 20180131
  14. ILARIS [Suspect]
     Active Substance: CANAKINUMAB
     Dosage: 75 OT, QW
     Route: 058
     Dates: start: 20180626
  15. ILARIS [Suspect]
     Active Substance: CANAKINUMAB
     Dosage: UNK UNK, Q4W
     Route: 058
     Dates: start: 20180820
  16. ILARIS [Suspect]
     Active Substance: CANAKINUMAB
     Dosage: UNK
     Route: 065
     Dates: start: 20170810
  17. ILARIS [Suspect]
     Active Substance: CANAKINUMAB
     Dosage: UNK
     Route: 058
     Dates: start: 20171005
  18. ILARIS [Suspect]
     Active Substance: CANAKINUMAB
     Dosage: UNK
     Route: 058
     Dates: start: 20171129
  19. ILARIS [Suspect]
     Active Substance: CANAKINUMAB
     Dosage: 75 OT, QW
     Route: 058
     Dates: start: 20180525
  20. ILARIS [Suspect]
     Active Substance: CANAKINUMAB
     Dosage: 75 OT, Q4W
     Route: 058
     Dates: start: 20180423

REACTIONS (5)
  - Haematochezia [Unknown]
  - Headache [Unknown]
  - Body temperature decreased [Unknown]
  - Blood pressure decreased [Unknown]
  - Adenoidal hypertrophy [Unknown]

NARRATIVE: CASE EVENT DATE: 20170422
